FAERS Safety Report 7267044-6 (Version None)
Quarter: 2011Q1

REPORT INFORMATION
  Report Type: 
  Country: None (occurrence: None)
  Receive Date: 20110201
  Receipt Date: 20110118
  Transmission Date: 20110831
  Serious: Yes (Hospitalization)
  Sender: FDA-Public Use
  Company Number: PHHY2011US03960

PATIENT
  Sex: Male

DRUGS (3)
  1. TEGRETOL-XR [Suspect]
     Dosage: 400 MG, BID
     Dates: start: 20090725
  2. MEDICINE FOR MIGRAINE HEADACHE [Concomitant]
     Indication: MIGRAINE
  3. IMMUNOGLOBULINS [Concomitant]

REACTIONS (2)
  - CONVULSION [None]
  - ANTICONVULSANT DRUG LEVEL DECREASED [None]
